FAERS Safety Report 7168308-7 (Version None)
Quarter: 2010Q4

REPORT INFORMATION
  Report Type: 
  Country: None (occurrence: None)
  Receive Date: 20101216
  Receipt Date: 20101203
  Transmission Date: 20110411
  Serious: Yes (Hospitalization)
  Sender: FDA-Public Use
  Company Number: JP-GENENTECH-307725

PATIENT
  Sex: Female

DRUGS (13)
  1. OMALIZUMAB [Suspect]
     Indication: ASTHMA
     Dosage: 300 MG, Q2W
     Route: 058
     Dates: start: 20091023
  2. QVAR 40 [Concomitant]
     Indication: PRODUCT USED FOR UNKNOWN INDICATION
     Dosage: UNK
     Dates: start: 20091023
  3. HOKUNALIN [Concomitant]
     Indication: PRODUCT USED FOR UNKNOWN INDICATION
     Dosage: UNK
     Dates: start: 20091023
  4. KIPRES [Concomitant]
     Indication: PRODUCT USED FOR UNKNOWN INDICATION
  5. PREDONINE [Concomitant]
     Indication: PRODUCT USED FOR UNKNOWN INDICATION
     Dosage: UNK
     Dates: start: 20100224
  6. PREDONINE [Concomitant]
     Dosage: UNK
     Dates: start: 20091114
  7. PREDONINE [Concomitant]
     Dosage: UNK
     Dates: start: 20100106, end: 20100112
  8. PREDONINE [Concomitant]
     Dosage: UNK
     Dates: start: 20100220, end: 20100224
  9. MEPTIN [Concomitant]
     Indication: PRODUCT USED FOR UNKNOWN INDICATION
     Dosage: UNK
     Dates: start: 20091114, end: 20091116
  10. MEPTIN [Concomitant]
     Dosage: UNK
     Dates: start: 20100220
  11. MEPTIN [Concomitant]
     Dosage: UNK
     Dates: start: 20100106, end: 20100111
  12. MEPTIN [Concomitant]
     Dosage: UNK
     Dates: start: 20100220
  13. SPIRIVA [Concomitant]
     Indication: PRODUCT USED FOR UNKNOWN INDICATION
     Dosage: UNK
     Dates: start: 20091023

REACTIONS (1)
  - ASTHMA [None]
